FAERS Safety Report 9335544 (Version 1)
Quarter: 2013Q2

REPORT INFORMATION
  Report Type: Report from Study
  Country: NL (occurrence: NL)
  Receive Date: 20130607
  Receipt Date: 20130607
  Transmission Date: 20140414
  Serious: Yes (Death)
  Sender: FDA-Public Use
  Company Number: NL-ROCHE-1232273

PATIENT
  Age: 54 Year
  Sex: Male

DRUGS (5)
  1. BEVACIZUMAB [Suspect]
     Indication: COLON CANCER
     Dosage: DATE OF LAST CYCLE: 15/SEP/2011
     Route: 042
     Dates: start: 20110401
  2. CAPECITABINE [Suspect]
     Indication: COLON CANCER
     Dosage: DATE OF LAST CYCLE: 29/SEP/2011
     Route: 048
     Dates: start: 20110311
  3. OXALIPLATIN [Suspect]
     Indication: COLON CANCER
     Dosage: DATE OF LAST CYCLE: 24/JUN/2011
     Route: 042
     Dates: start: 20110311
  4. RAMIPRIL [Concomitant]
  5. NORVASC [Concomitant]

REACTIONS (2)
  - Febrile neutropenia [Fatal]
  - Diarrhoea [Fatal]
